FAERS Safety Report 10311089 (Version 1)
Quarter: 2014Q3

REPORT INFORMATION
  Report Type: Report from Study
  Country: CA (occurrence: None)
  Receive Date: 20140715
  Receipt Date: 20140715
  Transmission Date: 20150326
  Serious: Yes (Other)
  Sender: FDA-Public Use
  Company Number: AXC-2014-000434

PATIENT
  Age: 34 Year
  Sex: Female
  Weight: 59 kg

DRUGS (5)
  1. SALOFALK (MESALAMINE) UNKNOWN [Suspect]
     Active Substance: MESALAMINE
     Indication: PRODUCT USED FOR UNKNOWN INDICATION
     Dosage: UNK
  2. CORTIFOAM (HYDROCORTISONE ACETATE) [Concomitant]
  3. IMURAN /00001501/ (AZATHIOPRINE) [Concomitant]
  4. PREDNISONE (PREDNISONE) [Concomitant]
     Active Substance: PREDNISONE
  5. REMICADE [Suspect]
     Active Substance: INFLIXIMAB
     Indication: PRODUCT USED FOR UNKNOWN INDICATION
     Route: 042

REACTIONS (2)
  - Thrombosis [None]
  - Alopecia [None]
